FAERS Safety Report 4709235-1 (Version None)
Quarter: 2005Q3

REPORT INFORMATION
  Report Type: 
  Country: None (occurrence: None)
  Receive Date: 20050705
  Receipt Date: 20050621
  Transmission Date: 20060218
  Serious: Yes (Other)
  Sender: FDA-Public Use
  Company Number: 2005091733

PATIENT
  Age: 69 Year
  Sex: Male
  Weight: 90.7194 kg

DRUGS (3)
  1. ROGAINE [Suspect]
     Indication: ALOPECIA
     Dosage: ONE SPRAY BID, TOPICAL
     Route: 061
     Dates: start: 19950101
  2. SIMVASTATIN [Concomitant]
  3. GLIBOMET (GLIBCENCLAMIDE, METFORMIN HYDROCHLORIDE) [Concomitant]

REACTIONS (3)
  - NERVOUS SYSTEM DISORDER [None]
  - SKIN EXFOLIATION [None]
  - SKIN ULCER [None]
